FAERS Safety Report 23482620 (Version 1)
Quarter: 2024Q1

REPORT INFORMATION
  Report Type: Spontaneous
  Country: CN (occurrence: None)
  Receive Date: 20240205
  Receipt Date: 20240205
  Transmission Date: 20240410
  Serious: Yes (Life-Threatening)
  Sender: FDA-Public Use
  Company Number: 2024A028477

PATIENT
  Age: 26517 Day
  Sex: Female
  Weight: 64 kg

DRUGS (1)
  1. BRILINTA [Suspect]
     Active Substance: TICAGRELOR
     Indication: Angina unstable
     Route: 048
     Dates: start: 20240109, end: 20240111

REACTIONS (1)
  - Chest discomfort [Recovering/Resolving]

NARRATIVE: CASE EVENT DATE: 20240110
